FAERS Safety Report 21006940 (Version 2)
Quarter: 2022Q3

REPORT INFORMATION
  Report Type: Spontaneous
  Country: DE (occurrence: DE)
  Receive Date: 20220625
  Receipt Date: 20220711
  Transmission Date: 20221027
  Serious: Yes (Other)
  Sender: FDA-Public Use
  Company Number: DE-NOVARTISPH-NVSC2022DE144604

PATIENT
  Age: 60 Year
  Sex: Male

DRUGS (1)
  1. GILENYA [Suspect]
     Active Substance: FINGOLIMOD HYDROCHLORIDE
     Indication: Multiple sclerosis
     Dosage: UNK
     Route: 065
     Dates: start: 2011, end: 2014

REACTIONS (4)
  - Multiple sclerosis [Unknown]
  - Multiple sclerosis relapse [Unknown]
  - JC polyomavirus test positive [Unknown]
  - Lymphopenia [Unknown]

NARRATIVE: CASE EVENT DATE: 20160101
